FAERS Safety Report 16031763 (Version 1)
Quarter: 2019Q1

REPORT INFORMATION
  Report Type: Spontaneous
  Country: US (occurrence: US)
  Receive Date: 20190304
  Receipt Date: 20190304
  Transmission Date: 20190418
  Serious: Yes (Other)
  Sender: FDA-Public Use
  Company Number: US-BIOVITRUM-2019US0362

PATIENT
  Sex: Female

DRUGS (1)
  1. ORFADIN [Suspect]
     Active Substance: NITISINONE
     Indication: TYROSINAEMIA

REACTIONS (4)
  - Paralysis [Recovered/Resolved]
  - Pain [Recovered/Resolved]
  - Treatment noncompliance [Unknown]
  - Succinylacetone increased [Unknown]
